FAERS Safety Report 6098879-3 (Version None)
Quarter: 2009Q1

REPORT INFORMATION
  Report Type: 
  Country: None (occurrence: None)
  Receive Date: 20090302
  Receipt Date: 20090225
  Transmission Date: 20090719
  Serious: Yes (Other)
  Sender: FDA-Public Use
  Company Number: B0562227A

PATIENT
  Age: 56 Year
  Sex: Female

DRUGS (5)
  1. AVANDIA [Suspect]
     Indication: DIABETES MELLITUS
     Route: 048
  2. METFORMIN HCL [Concomitant]
  3. GLICLAZIDE [Concomitant]
  4. PERINDOPRIL ERBUMINE [Concomitant]
  5. FELODIPINE [Concomitant]

REACTIONS (1)
  - MYOCARDIAL INFARCTION [None]
